FAERS Safety Report 10442181 (Version 1)
Quarter: 2014Q2

REPORT INFORMATION
  Report Type: Spontaneous
  Country: US (occurrence: None)
  Receive Date: 20140618
  Receipt Date: 20140618
  Transmission Date: 20141212
  Serious: Yes (Hospitalization, Other)
  Sender: FDA-Public Use
  Company Number: 082067

PATIENT
  Sex: Male
  Weight: 101.1 kg

DRUGS (6)
  1. LACOSAMIDE [Suspect]
     Indication: CONVULSION
     Route: 048
  2. DEXLANSOPRAZOLE [Concomitant]
  3. ASPIRIN [Concomitant]
  4. CARDIZEM [Concomitant]
  5. CYMBALTA [Concomitant]
  6. ZOCOR [Concomitant]

REACTIONS (7)
  - Arteriosclerosis coronary artery [None]
  - Convulsion [None]
  - Gastroenteritis viral [None]
  - Carpal tunnel syndrome [None]
  - Paraesthesia [None]
  - Anxiety [None]
  - Neuropathy peripheral [None]
